FAERS Safety Report 9609284 (Version 1)
Quarter: 2013Q4

REPORT INFORMATION
  Report Type: Spontaneous
  Country: SE (occurrence: SE)
  Receive Date: 20131009
  Receipt Date: 20131009
  Transmission Date: 20140711
  Serious: Yes (Hospitalization)
  Sender: FDA-Public Use
  Company Number: SE-UCBSA-099204

PATIENT
  Sex: Female

DRUGS (3)
  1. VIMPAT [Suspect]
     Dates: start: 201111
  2. KEPPRA [Concomitant]
  3. LAMICTAL [Concomitant]

REACTIONS (1)
  - Dementia [Recovered/Resolved]
